FAERS Safety Report 5787006 (Version 16)
Quarter: 2012Q4

REPORT INFORMATION
  Report Type: 
  Country: US (occurrence: US)
  Receive Date: 20050503
  Receipt Date: 20121226
  Transmission Date: 20130627
  Serious: Yes (Death, Hospitalization, Other)
  Sender: FDA-Public Use
  Company Number: PHEH2005US03757

PATIENT
  Age: 55 Year
  Sex: Female

DRUGS (36)
  1. AREDIA [Suspect]
     Indication: METASTASES TO BONE
     Dosage: 90 mg, QMO
     Route: 042
     Dates: start: 20000609, end: 20020214
  2. AREDIA [Suspect]
     Dosage: 90 mg, QMO
     Route: 042
     Dates: start: 20031219, end: 20040514
  3. ZOMETA [Suspect]
     Indication: BREAST CANCER METASTATIC
     Dosage: 4 mg, QMO
     Route: 042
     Dates: start: 20020322, end: 20030912
  4. TAMOXIFEN [Concomitant]
     Dosage: 10 mg, BID
     Route: 048
     Dates: start: 20000310, end: 20020110
  5. TAMOXIFEN [Concomitant]
     Dosage: 20 mg, QD
     Route: 048
     Dates: start: 20040331, end: 20051019
  6. VALIUM [Concomitant]
     Indication: INSOMNIA
     Dosage: 2 mg, 1-2 tabs QHS
     Dates: start: 20000808
  7. VALIUM [Concomitant]
     Dosage: 5 mg, UNK
  8. VALIUM [Concomitant]
     Dosage: 10 mg, UNK
  9. VALIUM [Concomitant]
     Dosage: 7.5 mg,  2 tabs QHS prn
     Route: 048
  10. ATIVAN [Concomitant]
     Indication: INSOMNIA
     Dosage: 1 mg, UNK
     Dates: start: 20000704, end: 20000704
  11. SPIRONOLACTONE [Concomitant]
     Indication: ASCITES
     Dosage: 100 mg, UNK
     Dates: start: 20000407, end: 20001027
  12. RANITIDINE [Concomitant]
     Indication: ANTACID THERAPY
  13. PRILOSEC [Concomitant]
     Indication: ULCER
     Dates: start: 20010220
  14. PROTONIX [Concomitant]
  15. PAXIL [Concomitant]
     Indication: DEPRESSION
     Dosage: 10 mg, QD
     Route: 048
     Dates: start: 20010712
  16. PAXIL [Concomitant]
     Dosage: 20 mg, QD
  17. PROZAC [Concomitant]
     Indication: DEPRESSION
     Dosage: 40 mg, UNK
  18. PROZAC [Concomitant]
     Dosage: 20 mg, UNK
  19. ZOLOFT [Concomitant]
     Dosage: 50 mg, QD in AM
  20. FEMARA [Concomitant]
     Indication: BREAST CANCER METASTATIC
     Dosage: 2.5 mg, QD
     Dates: start: 20020523, end: 200309
  21. LASIX [Concomitant]
     Indication: OEDEMA PERIPHERAL
     Dosage: 20 mg, prn
     Route: 048
  22. AMBIEN [Concomitant]
     Indication: INSOMNIA
     Dosage: 10 mg, UNK
     Dates: start: 20021011
  23. NAPROXEN [Concomitant]
     Indication: PAIN
     Dosage: 500 mg, BID
     Route: 048
     Dates: start: 20030617
  24. AROMASIN [Concomitant]
     Indication: BREAST CANCER METASTATIC
     Dates: start: 20031112, end: 20040331
  25. RITALIN [Concomitant]
     Indication: FATIGUE
     Dosage: 20 mg, QD
     Route: 048
  26. RITALIN [Concomitant]
     Dosage: 40 mg, UNK
  27. RITALIN [Concomitant]
     Dosage: 80 mg, UNK
  28. RITALIN [Concomitant]
     Dosage: 60 mg, QD
  29. ZYBAN [Concomitant]
     Indication: SMOKING CESSATION THERAPY
     Dates: start: 20040618
  30. NEXIUM [Concomitant]
  31. FASLODEX [Concomitant]
  32. VICODIN [Concomitant]
     Indication: PAIN
     Dates: start: 20000302
  33. TEMAZEPAM [Concomitant]
     Indication: INSOMNIA
     Dosage: 15 mg, QHS
     Route: 048
     Dates: start: 20000310, end: 20000915
  34. IRON [Concomitant]
     Route: 048
  35. FENTANYL [Concomitant]
     Dosage: 200 mg, UNK
     Route: 062
  36. REGLAN [Concomitant]

REACTIONS (69)
  - General physical health deterioration [Fatal]
  - Breast cancer metastatic [Fatal]
  - Osteonecrosis of jaw [Not Recovered/Not Resolved]
  - Malnutrition [Not Recovered/Not Resolved]
  - Gait disturbance [Not Recovered/Not Resolved]
  - Oedema peripheral [Not Recovered/Not Resolved]
  - Bone disorder [Not Recovered/Not Resolved]
  - Oral disorder [Not Recovered/Not Resolved]
  - Primary sequestrum [Not Recovered/Not Resolved]
  - Osteitis [Unknown]
  - Impaired healing [Unknown]
  - Mastication disorder [Not Recovered/Not Resolved]
  - Jaw cyst [Not Recovered/Not Resolved]
  - Purulent discharge [Not Recovered/Not Resolved]
  - Culture positive [Unknown]
  - Weight decreased [Not Recovered/Not Resolved]
  - Dental fistula [Unknown]
  - X-ray abnormal [Unknown]
  - Depressed level of consciousness [Unknown]
  - Pleural effusion [Unknown]
  - Metastases to bone [Unknown]
  - Bone scan abnormal [Unknown]
  - Tumour marker increased [Unknown]
  - Hypokalaemia [Recovering/Resolving]
  - Depression [Not Recovered/Not Resolved]
  - Hypersomnia [Unknown]
  - Transient ischaemic attack [Unknown]
  - Tooth disorder [Unknown]
  - Toothache [Not Recovered/Not Resolved]
  - Salivary hypersecretion [Recovering/Resolving]
  - Periodontal disease [Not Recovered/Not Resolved]
  - Fatigue [Not Recovered/Not Resolved]
  - Asthenia [Unknown]
  - Muscle spasms [Not Recovered/Not Resolved]
  - Bone pain [Not Recovered/Not Resolved]
  - Gastritis [Unknown]
  - Influenza like illness [Recovering/Resolving]
  - Insomnia [Recovering/Resolving]
  - Oesophagitis [Unknown]
  - Pallor [Unknown]
  - Anaemia [Unknown]
  - Chest pain [Unknown]
  - Hydronephrosis [Unknown]
  - Hypoalbuminaemia [Unknown]
  - Pruritus [Unknown]
  - Atrophy [Unknown]
  - Haematemesis [Unknown]
  - Increased upper airway secretion [Unknown]
  - Malignant ascites [Unknown]
  - Ageusia [Unknown]
  - Dysphagia [Unknown]
  - Atelectasis [Unknown]
  - Dyspnoea [Unknown]
  - Gastrooesophageal reflux disease [Unknown]
  - Abdominal distension [Unknown]
  - Constipation [Unknown]
  - Pain [Unknown]
  - Ascites [Unknown]
  - Faeces discoloured [Unknown]
  - Feeling abnormal [Unknown]
  - Osteoarthritis [Unknown]
  - Plantar fasciitis [Unknown]
  - Intervertebral disc degeneration [Unknown]
  - Intervertebral disc space narrowing [Unknown]
  - Exostosis [Unknown]
  - Lung consolidation [Unknown]
  - Hypoxia [Unknown]
  - Angiopathy [Unknown]
  - Metastases to spine [Unknown]
